FAERS Safety Report 8832157 (Version 1)
Quarter: 2012Q4

REPORT INFORMATION
  Report Type: 
  Country: US (occurrence: US)
  Receive Date: 20121009
  Receipt Date: 20121009
  Transmission Date: 20130627
  Serious: No
  Sender: FDA-Public Use
  Company Number: US-BAYER-2012-101975

PATIENT
  Age: 86 Year
  Sex: Male

DRUGS (10)
  1. LEVITRA [Suspect]
     Indication: ERECTILE DYSFUNCTION
     Dosage: UNK
     Route: 048
     Dates: end: 20120925
  2. OMEPRAZOLE [Concomitant]
  3. ASPIRIN [Concomitant]
  4. DIOVAN [Concomitant]
  5. VITAMINS [Concomitant]
  6. METFORMIN [Concomitant]
  7. METOPROLOL [Concomitant]
  8. GLIMEPIRIDE [Concomitant]
  9. SIMVASTIN [Concomitant]
  10. VESICARE [Concomitant]

REACTIONS (2)
  - Erectile dysfunction [None]
  - Erectile dysfunction [None]
